FAERS Safety Report 22084129 (Version 1)
Quarter: 2023Q1

REPORT INFORMATION
  Report Type: Spontaneous
  Country: US (occurrence: US)
  Receive Date: 20230310
  Receipt Date: 20230310
  Transmission Date: 20230417
  Serious: Yes (Life-Threatening, Hospitalization, Other)
  Sender: FDA-Public Use
  Company Number: US-VERTEX PHARMACEUTICALS-2023-003413

PATIENT
  Sex: Female

DRUGS (1)
  1. TRIKAFTA [Suspect]
     Active Substance: ELEXACAFTOR\IVACAFTOR\TEZACAFTOR
     Indication: Cystic fibrosis
     Dosage: UNK FREQ
     Route: 048

REACTIONS (6)
  - Mechanical ventilation [Unknown]
  - Liver transplant [Unknown]
  - Lung transplant [Unknown]
  - Feeling abnormal [Recovering/Resolving]
  - Rehabilitation therapy [Unknown]
  - Intensive care unit delirium [Unknown]

NARRATIVE: CASE EVENT DATE: 20221201
